FAERS Safety Report 4986987-7 (Version None)
Quarter: 2006Q2

REPORT INFORMATION
  Report Type: 
  Country: None (occurrence: None)
  Receive Date: 20060501
  Receipt Date: 20060421
  Transmission Date: 20061013
  Serious: Yes (Other)
  Sender: FDA-Public Use
  Company Number: PHBS2006NO05865

PATIENT
  Age: 11 Year
  Sex: Male

DRUGS (3)
  1. RITALIN [Suspect]
     Indication: HYPERKINESIA
     Dosage: 10 MG, TID
     Route: 048
     Dates: start: 20010101, end: 20060102
  2. ZOLOFT [Suspect]
     Indication: ANXIETY
     Dosage: 25 MG, QD
     Route: 048
     Dates: start: 20051125, end: 20051201
  3. ZOLOFT [Suspect]
     Dosage: 50 MG, QD
     Route: 048
     Dates: start: 20051202, end: 20051205

REACTIONS (2)
  - DRUG INTERACTION [None]
  - EPILEPSY [None]
